FAERS Safety Report 9466233 (Version 2)
Quarter: 2013Q4

REPORT INFORMATION
  Report Type: Spontaneous
  Country: CO (occurrence: CO)
  Receive Date: 20130820
  Receipt Date: 20131029
  Transmission Date: 20140711
  Serious: Yes (Hospitalization, Other)
  Sender: FDA-Public Use
  Company Number: CO-PFIZER INC-2013237895

PATIENT
  Age: 20 Year
  Sex: Male

DRUGS (5)
  1. SUTENT [Suspect]
     Indication: RENAL CANCER METASTATIC
     Dosage: 50 MG, 1X/DAY
     Route: 048
     Dates: start: 2012, end: 201203
  2. SUTENT [Suspect]
     Dosage: 50 MG, 1X/DAY
     Route: 048
     Dates: start: 201206, end: 20130807
  3. ENOXAPARIN [Concomitant]
     Indication: COAGULOPATHY
     Dosage: UNK EVERY 12 HOURS
     Dates: start: 2012
  4. IPRATROPIUM BROMIDE [Concomitant]
     Indication: LUNG DISORDER
     Dosage: UNK EVERY 12 HOURS
     Route: 055
     Dates: start: 2011
  5. AZITHROMYCIN [Concomitant]
     Indication: LUNG DISORDER
     Dosage: UNK EVERY 12 HOURS
     Route: 055
     Dates: start: 2011

REACTIONS (4)
  - Pulmonary embolism [Unknown]
  - Respiratory arrest [Recovered/Resolved]
  - Peritonitis [Not Recovered/Not Resolved]
  - Cardiac disorder [Not Recovered/Not Resolved]
